FAERS Safety Report 17366947 (Version 1)
Quarter: 2020Q1

REPORT INFORMATION
  Report Type: Spontaneous
  Country: FR (occurrence: FR)
  Receive Date: 20200204
  Receipt Date: 20200204
  Transmission Date: 20200409
  Serious: Yes (Other)
  Sender: FDA-Public Use
  Company Number: FR-PFIZER INC-2020040458

PATIENT
  Sex: Male
  Weight: 97 kg

DRUGS (2)
  1. ALLOPURINOL TEVA [Suspect]
     Active Substance: ALLOPURINOL
     Indication: GOUT
     Dosage: 200 MG, 1X/DAY
     Route: 048
     Dates: start: 2008
  2. ZOXAN (DOXAZOSIN MESILATE) [Suspect]
     Active Substance: DOXAZOSIN MESYLATE
     Indication: BENIGN PROSTATIC HYPERPLASIA
     Dosage: 1 DF, 1X/DAY
     Route: 048
     Dates: start: 20180917, end: 20190122

REACTIONS (3)
  - Nightmare [Not Recovered/Not Resolved]
  - Dry mouth [Not Recovered/Not Resolved]
  - Polyneuropathy [Not Recovered/Not Resolved]

NARRATIVE: CASE EVENT DATE: 2018
